FAERS Safety Report 10630506 (Version 1)
Quarter: 2014Q4

REPORT INFORMATION
  Report Type: Spontaneous
  Country: US (occurrence: US)
  Receive Date: 20141205
  Receipt Date: 20141205
  Transmission Date: 20150529
  Serious: No
  Sender: FDA-Public Use
  Company Number: US-BRISTOL-MYERS SQUIBB COMPANY-21017959

PATIENT
  Age: 60 Year
  Sex: Female

DRUGS (3)
  1. APIDRA [Concomitant]
     Active Substance: INSULIN GLULISINE
  2. LEVEMIR [Concomitant]
     Active Substance: INSULIN DETEMIR
  3. SYMLIN [Suspect]
     Active Substance: PRAMLINTIDE ACETATE
     Route: 058

REACTIONS (1)
  - Drug prescribing error [Unknown]
